FAERS Safety Report 7955267-X (Version None)
Quarter: 2011Q4

REPORT INFORMATION
  Report Type: 
  Country: None (occurrence: None)
  Receive Date: 20111202
  Receipt Date: 20111121
  Transmission Date: 20120403
  Serious: No
  Sender: FDA-Public Use
  Company Number: US-BAYER-2011-113931

PATIENT
  Age: 56 Year
  Sex: Female
  Weight: 60 kg

DRUGS (2)
  1. SYNTHROID [Concomitant]
  2. ALEVE (CAPLET) [Suspect]
     Indication: ARTHRALGIA
     Dosage: UNK

REACTIONS (1)
  - ARTHRALGIA [None]
